FAERS Safety Report 26213641 (Version 1)
Quarter: 2025Q4

REPORT INFORMATION
  Report Type: Spontaneous
  Country: US (occurrence: US)
  Receive Date: 20251230
  Receipt Date: 20251230
  Transmission Date: 20260117
  Serious: Yes (Other)
  Sender: MERCK SHARP & DOHME LLC
  Company Number: US-009507513-2348404

PATIENT
  Age: 17 Year
  Sex: Male

DRUGS (4)
  1. PROQUAD [Suspect]
     Active Substance: MEASLES VIRUS STRAIN ENDERS^ ATTENUATED EDMONSTON LIVE ANTIGEN\MUMPS VIRUS STRAIN B LEVEL JERYL LYNN
     Indication: Prophylaxis
     Dosage: TIME INTERVAL: TOTAL
     Dates: start: 20130404, end: 20130404
  2. VARIVAX [Suspect]
     Active Substance: VARICELLA-ZOSTER VIRUS STRAIN OKA/MERCK LIVE ANTIGEN
     Indication: Prophylaxis
     Dosage: TIME INTERVAL: TOTAL
     Dates: start: 20090616, end: 20090616
  3. STERILE DILUENT (WATER) [Suspect]
     Active Substance: WATER
     Dates: start: 20090616, end: 20090616
  4. STERILE DILUENT (WATER) [Suspect]
     Active Substance: WATER
     Dates: start: 20130404, end: 20130404

REACTIONS (2)
  - Herpes zoster [Recovered/Resolved]
  - Pertussis [Unknown]

NARRATIVE: CASE EVENT DATE: 20251022
